FAERS Safety Report 9225518 (Version 1)
Quarter: 2013Q2

REPORT INFORMATION
  Report Type: Spontaneous
  Country: US (occurrence: US)
  Receive Date: 20130411
  Receipt Date: 20130411
  Transmission Date: 20140414
  Serious: Yes (Other)
  Sender: FDA-Public Use
  Company Number: US-PFIZER INC-2013112175

PATIENT
  Sex: Female

DRUGS (3)
  1. ARTHROTEC [Suspect]
     Indication: BACK PAIN
     Dosage: UNK, 2X/DAY
     Route: 048
     Dates: start: 2012
  2. ARTHROTEC [Suspect]
     Indication: ARTHRALGIA
  3. ARTHROTEC [Suspect]
     Indication: ARTHRALGIA

REACTIONS (7)
  - Incorrect drug administration rate [Unknown]
  - Bedridden [Recovered/Resolved]
  - Arthropathy [Unknown]
  - Bone disorder [Unknown]
  - Joint range of motion decreased [Recovered/Resolved]
  - Gait disturbance [Recovered/Resolved]
  - Joint stiffness [Unknown]
